FAERS Safety Report 5512926-6 (Version None)
Quarter: 2007Q4

REPORT INFORMATION
  Report Type: 
  Country: None (occurrence: None)
  Receive Date: 20071112
  Receipt Date: 20071108
  Transmission Date: 20080405
  Serious: Yes (Hospitalization)
  Sender: FDA-Public Use
  Company Number: JP-ASTRAZENECA-2007AP07147

PATIENT
  Age: 32 Year
  Sex: Male

DRUGS (7)
  1. PULMICORT RESPULES [Suspect]
     Indication: ASTHMA
     Route: 055
     Dates: start: 20071029, end: 20071029
  2. FLUTIDE:DISKUS [Concomitant]
     Route: 055
     Dates: start: 20040501
  3. THEOPHYLLINE [Concomitant]
     Dosage: DOSE UNKNOWN
     Route: 048
     Dates: start: 20040501
  4. SULTANOL [Concomitant]
     Dosage: DOSE UNKNOWN
     Route: 065
     Dates: start: 20040501
  5. NEOPHYLLIN M [Concomitant]
     Route: 041
     Dates: start: 20071029, end: 20071029
  6. PREDONINE [Concomitant]
     Route: 041
     Dates: start: 20071029, end: 20071029
  7. ALOTEC [Concomitant]
     Route: 055
     Dates: start: 20071029, end: 20071029

REACTIONS (1)
  - ASTHMA [None]
